FAERS Safety Report 18129256 (Version 2)
Quarter: 2020Q3

REPORT INFORMATION
  Report Type: Spontaneous
  Country: ES (occurrence: ES)
  Receive Date: 20200810
  Receipt Date: 20200928
  Transmission Date: 20201103
  Serious: Yes (Life-Threatening, Other)
  Sender: FDA-Public Use
  Company Number: ES-AMGEN-ESPSP2020127128

PATIENT

DRUGS (7)
  1. PEGFILGRASTIM [Suspect]
     Active Substance: PEGFILGRASTIM
     Indication: PROPHYLAXIS
     Dosage: UNK
     Route: 065
     Dates: start: 2019
  2. RITUXIMAB. [Concomitant]
     Active Substance: RITUXIMAB
     Indication: DIFFUSE LARGE B-CELL LYMPHOMA
     Dosage: UNK UNK, CYCLICAL
     Dates: start: 2019
  3. AVADOMIDE [Concomitant]
     Active Substance: AVADOMIDE
     Indication: DIFFUSE LARGE B-CELL LYMPHOMA
     Dosage: UNK UNK, CYCLICAL (ESCALATING DOSES (1?3 MG), UP TO SIX 21?DAY CYCLES)
     Route: 048
     Dates: start: 2019
  4. DOXORUBICIN [Concomitant]
     Active Substance: DOXORUBICIN
     Indication: DIFFUSE LARGE B-CELL LYMPHOMA
     Dosage: UNK UNK, CYCLICAL
     Dates: start: 2019
  5. PREDNISONE. [Concomitant]
     Active Substance: PREDNISONE
     Indication: DIFFUSE LARGE B-CELL LYMPHOMA
     Dosage: UNK UNK, CYCLICAL
     Dates: start: 2019
  6. VINCRISTINE [Concomitant]
     Active Substance: VINCRISTINE
     Indication: DIFFUSE LARGE B-CELL LYMPHOMA
     Dosage: UNK UNK, CYCLICAL
     Dates: start: 2019
  7. CYCLOPHOSPHAMIDE. [Concomitant]
     Active Substance: CYCLOPHOSPHAMIDE
     Indication: DIFFUSE LARGE B-CELL LYMPHOMA
     Dosage: UNK UNK, CYCLICAL
     Dates: start: 2019

REACTIONS (11)
  - Anaemia [Unknown]
  - Pneumonia [Unknown]
  - Neutropenia [Unknown]
  - Leukopenia [Unknown]
  - Sepsis [Unknown]
  - Hepatic infection bacterial [Unknown]
  - Febrile neutropenia [Unknown]
  - Skin infection [Unknown]
  - Hypotension [Unknown]
  - Lymphopenia [Unknown]
  - Hypophosphataemia [Unknown]
